FAERS Safety Report 5217401-4 (Version None)
Quarter: 2007Q1

REPORT INFORMATION
  Report Type: 
  Country: None (occurrence: None)
  Receive Date: 20070124
  Receipt Date: 20060207
  Transmission Date: 20070707
  Serious: No
  Sender: FDA-Public Use
  Company Number: US-GLAXOSMITHKLINE-A0592675A

PATIENT
  Age: 66 Year
  Sex: Female

DRUGS (5)
  1. PAXIL CR [Suspect]
     Indication: CHRONIC FATIGUE SYNDROME
     Route: 048
  2. PAXIL [Suspect]
     Indication: CHRONIC FATIGUE SYNDROME
     Dosage: 20MG PER DAY
     Route: 048
  3. LAMICTAL [Concomitant]
     Indication: CHRONIC FATIGUE SYNDROME
     Dosage: 75MG UNKNOWN
     Route: 048
  4. KLONOPIN [Concomitant]
  5. ASPIRIN [Concomitant]

REACTIONS (5)
  - DRUG INEFFECTIVE [None]
  - FATIGUE [None]
  - ILL-DEFINED DISORDER [None]
  - THERAPEUTIC RESPONSE UNEXPECTED [None]
  - TREMOR [None]
